FAERS Safety Report 6179058-8 (Version None)
Quarter: 2009Q2

REPORT INFORMATION
  Report Type: 
  Country: None (occurrence: None)
  Receive Date: 20090505
  Receipt Date: 20090427
  Transmission Date: 20091009
  Serious: Yes (Other)
  Sender: FDA-Public Use
  Company Number: PHEH2009US03731

PATIENT
  Age: 47 Year
  Sex: Male

DRUGS (4)
  1. CLOZARIL [Suspect]
     Indication: SCHIZOPHRENIA
     Dosage: 550 MG, QD
     Dates: start: 19910101
  2. DEPAKOTE [Concomitant]
     Dosage: 1500 MG, UNK
  3. TRIHEXYPHENIDYL [Concomitant]
     Dosage: 1 MG, UNK
  4. COGENTIN [Concomitant]

REACTIONS (8)
  - BLOOD TEST ABNORMAL [None]
  - DELUSION [None]
  - DISTURBANCE IN ATTENTION [None]
  - PARANOIA [None]
  - PSYCHIATRIC DECOMPENSATION [None]
  - PSYCHOTIC DISORDER [None]
  - SPEECH DISORDER [None]
  - WEIGHT DECREASED [None]
